FAERS Safety Report 25732004 (Version 1)
Quarter: 2025Q3

REPORT INFORMATION
  Report Type: Spontaneous
  Country: US (occurrence: US)
  Receive Date: 20250827
  Receipt Date: 20250827
  Transmission Date: 20251021
  Serious: Yes (Death, Other)
  Sender: AMGEN
  Company Number: US-AMGEN-USASP2025166139

PATIENT
  Age: 39 Year
  Sex: Female
  Weight: 43.2 kg

DRUGS (1)
  1. FILGRASTIM [Suspect]
     Active Substance: FILGRASTIM
     Indication: Prophylaxis
     Route: 065

REACTIONS (10)
  - Death [Fatal]
  - Cardiac failure congestive [Unknown]
  - Polyomavirus viraemia [Unknown]
  - Transplant failure [Unknown]
  - Transplant rejection [Unknown]
  - Pancytopenia [Unknown]
  - Pneumonia [Unknown]
  - Pulmonary haemorrhage [Unknown]
  - Stenotrophomonas test positive [Unknown]
  - Hypervolaemia [Unknown]
